FAERS Safety Report 11128435 (Version 9)
Quarter: 2015Q3

REPORT INFORMATION
  Report Type: Report from Study
  Country: GB (occurrence: GB)
  Receive Date: 20150521
  Receipt Date: 20150731
  Transmission Date: 20151125
  Serious: Yes (Death, Hospitalization, Other)
  Sender: FDA-Public Use
  Company Number: GB-EISAI MEDICAL RESEARCH-E7080-01144-CLI-GB

PATIENT
  Age: 49 Year
  Sex: Female
  Weight: 89.3 kg

DRUGS (25)
  1. LENVATINIB [Suspect]
     Active Substance: LENVATINIB
     Indication: NON-SMALL CELL LUNG CANCER
     Route: 048
     Dates: start: 20120920, end: 20130207
  2. LENVATINIB [Suspect]
     Active Substance: LENVATINIB
     Route: 048
     Dates: start: 20130214, end: 20150514
  3. LENVATINIB [Suspect]
     Active Substance: LENVATINIB
     Route: 048
     Dates: start: 20150604, end: 20150611
  4. LANSOPRAZOLE. [Concomitant]
     Active Substance: LANSOPRAZOLE
     Indication: GASTROOESOPHAGEAL REFLUX PROPHYLAXIS
  5. RAMIPRIL. [Concomitant]
     Active Substance: RAMIPRIL
     Indication: HYPERTENSION
  6. CYCLIZINE [Concomitant]
     Active Substance: CYCLIZINE
  7. SIMPLE LINCTUS [Concomitant]
     Active Substance: AMARANTH\CHLOROFORM\CITRIC ACID MONOHYDRATE\PIMPINELLA ANISUM WHOLE
  8. ZOPICLONE [Concomitant]
     Active Substance: ZOPICLONE
  9. T4 [Concomitant]
     Active Substance: LEVOTHYROXINE
     Indication: METASTASES TO PITUITARY GLAND
  10. DESMOPRESSIN [Concomitant]
     Active Substance: DESMOPRESSIN
     Indication: METASTASES TO PITUITARY GLAND
  11. RANITADINE [Concomitant]
  12. 0.9% SALINE [Concomitant]
  13. TRAMADOL. [Concomitant]
     Active Substance: TRAMADOL
     Indication: ANALGESIC THERAPY
  14. CLEXANE [Concomitant]
     Active Substance: ENOXAPARIN SODIUM
  15. CAPHOSOL [Concomitant]
  16. LENVATINIB [Suspect]
     Active Substance: LENVATINIB
     Route: 048
     Dates: start: 20150528, end: 20150531
  17. ORAMORPH [Concomitant]
     Active Substance: MORPHINE SULFATE
  18. LEVOMEPROMAZINE [Concomitant]
     Active Substance: LEVOMEPROMAZINE
     Indication: NAUSEA
  19. DICLOFENAC [Concomitant]
     Active Substance: DICLOFENAC
     Indication: MYALGIA
  20. VOLTAROL [Concomitant]
     Active Substance: DICLOFENAC SODIUM
     Indication: MYALGIA
  21. PARACETAMOL [Concomitant]
     Active Substance: ACETAMINOPHEN
  22. HYDROCORTISONE. [Concomitant]
     Active Substance: HYDROCORTISONE
     Indication: METASTASES TO PITUITARY GLAND
  23. LOPERAMIDE [Concomitant]
     Active Substance: LOPERAMIDE
     Indication: DIARRHOEA
  24. AMLODIPINE [Concomitant]
     Active Substance: AMLODIPINE BESYLATE
  25. LEVOTHYROXINE. [Concomitant]
     Active Substance: LEVOTHYROXINE

REACTIONS (11)
  - Nausea [Recovered/Resolved]
  - Pneumonia [Fatal]
  - Malignant neoplasm progression [Fatal]
  - Accidental overdose [Recovered/Resolved]
  - Abdominal pain [Recovered/Resolved]
  - Diarrhoea [Recovered/Resolved]
  - Musculoskeletal pain [Recovered/Resolved]
  - Vomiting [Recovered/Resolved]
  - Pulmonary embolism [Fatal]
  - Hyponatraemia [Recovered/Resolved]
  - Back pain [Recovered/Resolved]

NARRATIVE: CASE EVENT DATE: 20130201
